FAERS Safety Report 15451094 (Version 7)
Quarter: 2019Q1

REPORT INFORMATION
  Report Type: Report from Study
  Country: TH (occurrence: TH)
  Receive Date: 20181001
  Receipt Date: 20190104
  Transmission Date: 20190417
  Serious: Yes (Death, Hospitalization, Other)
  Sender: FDA-Public Use
  Company Number: PHHY2018TH107446

PATIENT
  Sex: Female
  Weight: 50.1 kg

DRUGS (11)
  1. VOTRIENT [Suspect]
     Active Substance: PAZOPANIB HYDROCHLORIDE
     Indication: RENAL CELL CARCINOMA
     Dosage: 600 MG, UNK
     Route: 048
     Dates: start: 20180612, end: 20180903
  2. MADIPLOT [Concomitant]
     Dosage: 10 OT, UNK
     Route: 048
     Dates: start: 20180809, end: 20181007
  3. SAMARIN [Concomitant]
     Indication: PROPHYLAXIS
     Dosage: 70 OT, UNK
     Route: 048
  4. MEVALOTIN [Concomitant]
     Active Substance: PRAVASTATIN SODIUM
     Indication: DYSLIPIDAEMIA
     Dosage: 40 OT, UNK
     Route: 048
     Dates: start: 2008, end: 20080925
  5. NOVONORM [Concomitant]
     Active Substance: REPAGLINIDE
     Indication: DIABETES MELLITUS
     Dosage: 1 OT, UNK
     Route: 048
     Dates: start: 2008, end: 20180925
  6. TRADJENTA [Concomitant]
     Active Substance: LINAGLIPTIN
     Indication: DIABETES MELLITUS
     Dosage: 5 OT, UNK
     Route: 048
     Dates: end: 20180925
  7. DUPHALAC [Concomitant]
     Active Substance: LACTULOSE
     Indication: HEPATIC CIRRHOSIS
     Dosage: 30 OT, UNK
     Route: 048
     Dates: end: 20180901
  8. TAZOCIN [Concomitant]
     Active Substance: PIPERACILLIN SODIUM\TAZOBACTAM SODIUM
     Indication: PRODUCT USED FOR UNKNOWN INDICATION
     Dosage: UNK
     Route: 065
     Dates: start: 20180930
  9. OSELTAMIVIR [Concomitant]
     Active Substance: OSELTAMIVIR
     Indication: PRODUCT USED FOR UNKNOWN INDICATION
     Route: 065
  10. MADIPLOT [Concomitant]
     Indication: HYPERTENSION
     Dosage: 5 OT, UNK
     Route: 048
     Dates: start: 200801, end: 20180808
  11. AMLODIPINE [Concomitant]
     Active Substance: AMLODIPINE BESYLATE
     Indication: HAEMATOMA
     Dosage: 10 OT, UNK
     Route: 048
     Dates: start: 20180528

REACTIONS (11)
  - Acute kidney injury [Fatal]
  - Fatigue [Unknown]
  - Dysuria [Unknown]
  - Decreased appetite [Unknown]
  - Nasopharyngitis [Recovered/Resolved]
  - Pyrexia [Unknown]
  - Vomiting [Unknown]
  - Skin hypopigmentation [Not Recovered/Not Resolved]
  - Hypertension [Not Recovered/Not Resolved]
  - Nephrotic syndrome [Fatal]
  - Urinary tract infection [Recovered/Resolved]

NARRATIVE: CASE EVENT DATE: 20180702
